FAERS Safety Report 11055923 (Version 1)
Quarter: 2015Q2

REPORT INFORMATION
  Report Type: Spontaneous
  Country: BR (occurrence: BR)
  Receive Date: 20150422
  Receipt Date: 20150422
  Transmission Date: 20150821
  Serious: Yes (Hospitalization, Other)
  Sender: FDA-Public Use
  Company Number: BR-ABBVIE-15P-020-1379378-00

PATIENT
  Age: 52 Year
  Sex: Male
  Weight: 80 kg

DRUGS (8)
  1. DEPAKENE [Suspect]
     Active Substance: VALPROIC ACID
     Indication: TRAUMATIC INTRACRANIAL HAEMORRHAGE
  2. DEPAKENE [Suspect]
     Active Substance: VALPROIC ACID
     Indication: SURGERY
     Dosage: 07:00AM; 01:00 PM; 11:00 PM
     Route: 048
     Dates: start: 20110320
  3. MACRODANTIN [Concomitant]
     Active Substance: NITROFURANTOIN
     Indication: GASTROINTESTINAL DISORDER
  4. HIDROCLOROTIAZIDA [Concomitant]
     Active Substance: HYDROCHLOROTHIAZIDE
     Indication: BLOOD CHOLESTEROL INCREASED
     Dosage: 25 MG DAILY IN THE MORNING
     Route: 048
     Dates: start: 2014
  5. HIDANTAL [Concomitant]
     Active Substance: PHENYTOIN SODIUM
     Indication: PRODUCT USED FOR UNKNOWN INDICATION
     Dosage: IN THE MORNING AND AT NIGHT: DAILY DOSE: 200MG
     Route: 048
     Dates: start: 20110320
  6. ALL OTHER THERAPEUTIC PRODUCTS [Concomitant]
     Active Substance: UNSPECIFIED INGREDIENT
     Indication: PAIN
     Dosage: DAILY DOSE: 75 MG; IF PAIN TAKES MORE TIMES
     Route: 048
     Dates: start: 20110320
  7. MACRODANTIN [Concomitant]
     Active Substance: NITROFURANTOIN
     Indication: URINE ABNORMALITY
     Dosage: 100MG DAILY AT NIGHT
     Route: 048
     Dates: start: 201408
  8. DEPAKENE [Suspect]
     Active Substance: VALPROIC ACID
     Indication: SEIZURE

REACTIONS (11)
  - Heart rate increased [Recovered/Resolved]
  - Constipation [Not Recovered/Not Resolved]
  - Seizure [Recovered/Resolved]
  - Gastrointestinal disorder [Unknown]
  - Urinary tract infection [Not Recovered/Not Resolved]
  - Pyrexia [Recovered/Resolved]
  - Drug dose omission [Unknown]
  - Constipation [Recovered/Resolved]
  - Hypertension [Recovering/Resolving]
  - Chest pain [Recovered/Resolved]
  - Abdominal pain [Recovered/Resolved]

NARRATIVE: CASE EVENT DATE: 2013
